FAERS Safety Report 18998009 (Version 1)
Quarter: 2021Q1

REPORT INFORMATION
  Report Type: Spontaneous
  Country: GB (occurrence: GB)
  Receive Date: 20210311
  Receipt Date: 20210311
  Transmission Date: 20210420
  Serious: Yes (Other)
  Sender: FDA-Public Use
  Company Number: GB-MYLANLABS-2021M1013967

PATIENT
  Age: 18 Year
  Sex: Female
  Weight: 56 kg

DRUGS (4)
  1. QUETIAPINE. [Suspect]
     Active Substance: QUETIAPINE
     Indication: MAJOR DEPRESSION
     Dosage: UNK (150)
     Route: 048
  2. QUETIAPINE. [Suspect]
     Active Substance: QUETIAPINE
     Indication: ILL-DEFINED DISORDER
  3. QUETIAPINE. [Suspect]
     Active Substance: QUETIAPINE
     Indication: ANXIETY
  4. QUETIAPINE. [Suspect]
     Active Substance: QUETIAPINE
     Indication: MANIA

REACTIONS (4)
  - Feeling abnormal [Recovering/Resolving]
  - Amnesia [Recovering/Resolving]
  - Depression [Recovering/Resolving]
  - Anxiety [Unknown]
